FAERS Safety Report 19811366 (Version 1)
Quarter: 2021Q3

REPORT INFORMATION
  Report Type: Spontaneous
  Country: JP (occurrence: JP)
  Receive Date: 20210909
  Receipt Date: 20210909
  Transmission Date: 20211014
  Serious: Yes (Other)
  Sender: FDA-Public Use
  Company Number: JP-PFIZER INC-202101131767

PATIENT
  Age: 73 Year
  Sex: Female

DRUGS (1)
  1. SOLANAX [Suspect]
     Active Substance: ALPRAZOLAM
     Indication: PANIC DISORDER
     Dosage: 1.5 DF (TABLETS), DAILY
     Route: 048

REACTIONS (4)
  - Spinal deformity [Unknown]
  - Somnolence [Unknown]
  - Muscle tightness [Unknown]
  - Intentional product misuse [Unknown]
